FAERS Safety Report 8617854-5 (Version None)
Quarter: 2012Q3

REPORT INFORMATION
  Report Type: 
  Country: None (occurrence: None)
  Receive Date: 20120824
  Receipt Date: 20120223
  Transmission Date: 20120928
  Serious: No
  Sender: FDA-Public Use
  Company Number: US-ASTRAZENECA-2012SE12705

PATIENT
  Age: 65 Year
  Sex: Male

DRUGS (1)
  1. SYMBICORT [Suspect]
     Indication: BRONCHOSPASM
     Dosage: 80-4.5 MCG, BID
     Route: 055

REACTIONS (3)
  - DIABETES MELLITUS INADEQUATE CONTROL [None]
  - OFF LABEL USE [None]
  - HYPERTENSION [None]
